FAERS Safety Report 5221891-0 (Version None)
Quarter: 2007Q1

REPORT INFORMATION
  Report Type: 
  Country: None (occurrence: None)
  Receive Date: 20070126
  Receipt Date: 20070126
  Transmission Date: 20070707
  Serious: Yes (Other)
  Sender: FDA-Public Use
  Company Number: None

PATIENT
  Sex: Female
  Weight: 101.1521 kg

DRUGS (1)
  1. REQUIP [Suspect]
     Dosage: 4 MG  EVERY EVENING   PO
     Route: 048

REACTIONS (1)
  - DEEP VEIN THROMBOSIS [None]
